FAERS Safety Report 20645478 (Version 2)
Quarter: 2022Q2

REPORT INFORMATION
  Report Type: Report from Study
  Country: IL (occurrence: IL)
  Receive Date: 20220328
  Receipt Date: 20220427
  Transmission Date: 20220721
  Serious: Yes (Hospitalization, Other)
  Sender: FDA-Public Use
  Company Number: IL-TAKEDA-2022TUS019359

PATIENT
  Age: 65 Year
  Sex: Female

DRUGS (7)
  1. VELAGLUCERASE ALFA [Suspect]
     Active Substance: VELAGLUCERASE ALFA
     Indication: Gaucher^s disease
     Dosage: 15 INTERNATIONAL UNIT/KILOGRAM, Q2WEEKS
     Route: 065
     Dates: start: 20091112
  2. LIDOCAINE [Concomitant]
     Active Substance: LIDOCAINE
     Indication: Neuropathy peripheral
     Dosage: UNK UNK, QD
     Route: 058
  3. Magnezium beres + b6 [Concomitant]
     Indication: Neuropathy peripheral
     Dosage: UNK UNK, QD
     Route: 048
  4. BISOPROLOL FUMARATE [Concomitant]
     Active Substance: BISOPROLOL FUMARATE
     Indication: Hypertension
     Dosage: 25 MILLIGRAM, QD
     Route: 048
  5. HARVONI [Concomitant]
     Active Substance: LEDIPASVIR\SOFOSBUVIR
     Indication: Hepatitis B
     Dosage: UNK UNK, QD
     Route: 048
     Dates: start: 20160405
  6. HARVONI [Concomitant]
     Active Substance: LEDIPASVIR\SOFOSBUVIR
     Indication: Hepatitis C RNA
     Dosage: UNK
     Route: 048
     Dates: start: 20170406, end: 20171006
  7. EXFORGE [Concomitant]
     Active Substance: AMLODIPINE BESYLATE\VALSARTAN
     Indication: Hypertension
     Dosage: UNK UNK, BID
     Route: 048
     Dates: start: 20170326

REACTIONS (1)
  - Intra-abdominal fluid collection [Recovered/Resolved]

NARRATIVE: CASE EVENT DATE: 20220321
